FAERS Safety Report 12185496 (Version 2)
Quarter: 2016Q1

REPORT INFORMATION
  Report Type: Spontaneous
  Country: IT (occurrence: IT)
  Receive Date: 20160316
  Receipt Date: 20160323
  Transmission Date: 20160526
  Serious: Yes (Death, Hospitalization)
  Sender: FDA-Public Use
  Company Number: IT-ABBVIE-16P-083-1581448-00

PATIENT
  Age: 60 Year
  Sex: Male
  Weight: 70 kg

DRUGS (3)
  1. VIEKIRAX [Suspect]
     Active Substance: OMBITASVIR\PARITAPREVIR\RITONAVIR
     Indication: HEPATITIS C
     Dosage: DAILY
     Route: 048
     Dates: start: 20150915, end: 20160209
  2. EXVIERA [Suspect]
     Active Substance: DASABUVIR
     Indication: HEPATITIS C
     Dosage: DAILY
     Route: 048
     Dates: start: 20150915, end: 20160209
  3. RIBAVIRIN. [Suspect]
     Active Substance: RIBAVIRIN
     Indication: HEPATITIS C
     Dosage: DAILY
     Route: 048
     Dates: start: 20150915, end: 20160210

REACTIONS (3)
  - Cholelithiasis [Fatal]
  - Jaundice [Fatal]
  - Ascites [Fatal]

NARRATIVE: CASE EVENT DATE: 20160210
